FAERS Safety Report 9148714 (Version 1)
Quarter: 2013Q1

REPORT INFORMATION
  Report Type: Spontaneous
  Country: US (occurrence: None)
  Receive Date: 20130228
  Receipt Date: 20130228
  Transmission Date: 20140127
  Serious: Yes (Other)
  Sender: FDA-Public Use
  Company Number: None

PATIENT
  Age: 54 Year
  Sex: Female
  Weight: 95.26 kg

DRUGS (2)
  1. EPIPEN [Suspect]
     Indication: MULTIPLE CHEMICAL SENSITIVITY
     Dosage: ONE SHOT
     Dates: start: 20130226, end: 20130226
  2. EPIPEN [Suspect]
     Indication: REACTIVE AIRWAYS DYSFUNCTION SYNDROME
     Dosage: ONE SHOT
     Dates: start: 20130226, end: 20130226

REACTIONS (1)
  - Device malfunction [None]
